FAERS Safety Report 26114455 (Version 1)
Quarter: 2025Q4

REPORT INFORMATION
  Report Type: Spontaneous
  Country: RU (occurrence: RU)
  Receive Date: 20251202
  Receipt Date: 20251202
  Transmission Date: 20260117
  Serious: Yes (Other)
  Sender: JOHNSON AND JOHNSON
  Company Number: RU-BAYER-2025A157800

PATIENT
  Age: 67 Year
  Sex: Female
  Weight: 95 kg

DRUGS (2)
  1. XARELTO [Suspect]
     Active Substance: RIVAROXABAN
     Indication: Product used for unknown indication
     Dosage: 15 MG, QD
     Route: 048
     Dates: start: 20251125, end: 20251125
  2. ROSUVASTATIN [Concomitant]
     Active Substance: ROSUVASTATIN
     Indication: Product used for unknown indication

REACTIONS (3)
  - Pruritus [Recovering/Resolving]
  - Rash maculo-papular [Recovering/Resolving]
  - Erythema [Recovering/Resolving]

NARRATIVE: CASE EVENT DATE: 20251125
